FAERS Safety Report 16076035 (Version 2)
Quarter: 2020Q3

REPORT INFORMATION
  Report Type: Spontaneous
  Country: IN (occurrence: IN)
  Receive Date: 20190315
  Receipt Date: 20200701
  Transmission Date: 20201102
  Serious: Yes (Other)
  Sender: FDA-Public Use
  Company Number: IN-BRISTOL-MYERS SQUIBB COMPANY-BMS-2019-025013

PATIENT
  Age: 34 Year
  Sex: Female

DRUGS (1)
  1. NIVOLUMAB [Suspect]
     Active Substance: NIVOLUMAB
     Indication: BREAST CANCER
     Dosage: 240 MILLIGRAM
     Route: 042

REACTIONS (3)
  - Recall phenomenon [Recovering/Resolving]
  - Immune-mediated pneumonitis [Unknown]
  - Intentional product use issue [Unknown]
